FAERS Safety Report 19266147 (Version 3)
Quarter: 2021Q2

REPORT INFORMATION
  Report Type: Spontaneous
  Country: JP (occurrence: JP)
  Receive Date: 20210518
  Receipt Date: 20210630
  Transmission Date: 20210717
  Serious: Yes (Hospitalization, Other)
  Sender: FDA-Public Use
  Company Number: JP-AMGEN-JPNSP2021075687

PATIENT
  Age: 74 Year
  Sex: Male

DRUGS (3)
  1. DUVROQ [Concomitant]
     Active Substance: DAPRODUSTAT
     Dosage: 4 MG
     Route: 048
     Dates: start: 20200929
  2. DUVROQ [Concomitant]
     Active Substance: DAPRODUSTAT
     Dosage: 24 MG
     Route: 048
  3. NESP [Suspect]
     Active Substance: DARBEPOETIN ALFA
     Indication: PRODUCT USED FOR UNKNOWN INDICATION
     Dosage: 180 UG
     Route: 065

REACTIONS (2)
  - Pneumothorax [Unknown]
  - Pneumothorax [Recovered/Resolved]

NARRATIVE: CASE EVENT DATE: 202104
